FAERS Safety Report 8048031-7 (Version None)
Quarter: 2012Q1

REPORT INFORMATION
  Report Type: 
  Country: None (occurrence: None)
  Receive Date: 20120117
  Receipt Date: 20120109
  Transmission Date: 20120608
  Serious: Yes (Hospitalization)
  Sender: FDA-Public Use
  Company Number: US-AMGEN-USASP2012001445

PATIENT
  Age: 59 Year
  Sex: Female

DRUGS (1)
  1. ENBREL [Suspect]
     Indication: RHEUMATOID ARTHRITIS
     Dosage: 50 MG, QWK
     Dates: start: 20001201

REACTIONS (8)
  - VENOUS INJURY [None]
  - INJECTION SITE PAIN [None]
  - FELTY'S SYNDROME [None]
  - INJECTION SITE REACTION [None]
  - INJECTION SITE HAEMATOMA [None]
  - GALLBLADDER DISORDER [None]
  - PLATELET COUNT DECREASED [None]
  - PORTAL HYPERTENSION [None]
